FAERS Safety Report 18561079 (Version 1)
Quarter: 2020Q4

REPORT INFORMATION
  Report Type: Spontaneous
  Country: FR (occurrence: FR)
  Receive Date: 20201130
  Receipt Date: 20201130
  Transmission Date: 20210114
  Serious: Yes (Other)
  Sender: FDA-Public Use
  Company Number: FR-BAYER-2020-255281

PATIENT
  Age: 61 Year
  Sex: Male

DRUGS (4)
  1. SORAFENIB (RAF KINASE INHIBITOR) [Suspect]
     Active Substance: SORAFENIB
     Indication: HEPATOCELLULAR CARCINOMA
     Dosage: 400 MG, BID 2 TABLETS MORNING AND 2 TABLETS EVENING
     Route: 048
     Dates: start: 20200520
  2. AMLOR [Concomitant]
     Active Substance: AMLODIPINE BESYLATE
     Dosage: 5 MG
  3. BISOPROLOL [Concomitant]
     Active Substance: BISOPROLOL
     Dosage: UNK
  4. HYDROCHLOROTHIAZIDE. [Concomitant]
     Active Substance: HYDROCHLOROTHIAZIDE
     Dosage: UNK

REACTIONS (5)
  - Metastatic neoplasm [Recovering/Resolving]
  - Decreased appetite [None]
  - Hypertension [Recovering/Resolving]
  - Asthenia [None]
  - Diarrhoea [Recovering/Resolving]
